FAERS Safety Report 7092013-9 (Version None)
Quarter: 2010Q4

REPORT INFORMATION
  Report Type: 
  Country: None (occurrence: None)
  Receive Date: 20101109
  Receipt Date: 20080731
  Transmission Date: 20110411
  Serious: No
  Sender: FDA-Public Use
  Company Number: US-KINGPHARMUSA00001-K200800911

PATIENT

DRUGS (1)
  1. THROMBIN-JMI [Suspect]
     Dosage: UNK, SINGLE
     Dates: start: 20080731, end: 20080731

REACTIONS (2)
  - ACCIDENTAL EXPOSURE [None]
  - EYE IRRITATION [None]
